FAERS Safety Report 6847636-6 (Version None)
Quarter: 2010Q3

REPORT INFORMATION
  Report Type: 
  Country: None (occurrence: None)
  Receive Date: 20100716
  Receipt Date: 20100705
  Transmission Date: 20110219
  Serious: Yes (Other)
  Sender: FDA-Public Use
  Company Number: PHHY2010JP44366

PATIENT
  Age: 90 Year
  Sex: Female

DRUGS (1)
  1. PARLODEL [Suspect]
     Indication: PARKINSONISM
     Dosage: 2.5 MG, BID
     Route: 048

REACTIONS (1)
  - CEREBRAL INFARCTION [None]
